FAERS Safety Report 12288562 (Version 1)
Quarter: 2016Q2

REPORT INFORMATION
  Report Type: Spontaneous
  Country: US (occurrence: US)
  Receive Date: 20160421
  Receipt Date: 20160421
  Transmission Date: 20160815
  Serious: Yes (Other)
  Sender: FDA-Public Use
  Company Number: GXBR2016US001325

PATIENT
  Sex: Female

DRUGS (1)
  1. GLATOPA [Suspect]
     Active Substance: GLATIRAMER ACETATE
     Indication: PRODUCT USED FOR UNKNOWN INDICATION
     Dosage: UNK MG, UNK
     Route: 065

REACTIONS (11)
  - Injection site reaction [Unknown]
  - Optic neuritis [Unknown]
  - Gait disturbance [Unknown]
  - Pain [Unknown]
  - Inflammation [Unknown]
  - Urinary incontinence [Unknown]
  - Blood pressure increased [Unknown]
  - Cellulitis [Unknown]
  - Rash pruritic [Unknown]
  - Fall [Unknown]
  - Ingrown hair [Unknown]
